FAERS Safety Report 9635704 (Version 1)
Quarter: 2013Q4

REPORT INFORMATION
  Report Type: Spontaneous
  Country: FR (occurrence: FR)
  Receive Date: 20131021
  Receipt Date: 20131021
  Transmission Date: 20140711
  Serious: Yes (Hospitalization)
  Sender: FDA-Public Use
  Company Number: FR-GLAXOSMITHKLINE-B0929344A

PATIENT
  Age: 46 Year
  Sex: Female

DRUGS (5)
  1. LAMICTAL [Suspect]
     Indication: BIPOLAR DISORDER
     Dosage: 25MG PER DAY
     Route: 048
     Dates: start: 20130904, end: 20130920
  2. DEPAKOTE [Concomitant]
     Route: 048
  3. XANAX [Concomitant]
     Route: 048
  4. DUPHALAC [Concomitant]
     Route: 065
  5. CORTICOSTEROID [Concomitant]

REACTIONS (4)
  - Rash pruritic [Recovered/Resolved]
  - Face oedema [Recovered/Resolved]
  - Burning sensation [Unknown]
  - Toxic skin eruption [Recovered/Resolved]
